FAERS Safety Report 7246980-0 (Version None)
Quarter: 2011Q1

REPORT INFORMATION
  Report Type: 
  Country: None (occurrence: None)
  Receive Date: 20110127
  Receipt Date: 20110119
  Transmission Date: 20110831
  Serious: Yes (Hospitalization)
  Sender: FDA-Public Use
  Company Number: ES-NOVOPROD-321979

PATIENT
  Age: 70 Year
  Sex: Female

DRUGS (5)
  1. IMIPRAMINE [Concomitant]
     Indication: MAJOR DEPRESSION
     Dosage: 4 MG, QD
     Route: 048
     Dates: start: 20071201, end: 20100517
  2. INSULATARD FLEXPEN [Suspect]
     Dosage: 900 U, SINGLE
     Route: 058
     Dates: start: 20100517, end: 20100517
  3. METFORMIN [Suspect]
     Indication: PRODUCT USED FOR UNKNOWN INDICATION
     Dosage: UNK, UNK
  4. INSULATARD FLEXPEN [Suspect]
     Indication: PRODUCT USED FOR UNKNOWN INDICATION
     Dosage: UNK, UNK
  5. METFORMIN [Suspect]
     Dosage: 4 TAB, SINGLE
     Route: 048
     Dates: start: 20100517, end: 20100517

REACTIONS (2)
  - INTENTIONAL OVERDOSE [None]
  - HYPOGLYCAEMIA [None]
